FAERS Safety Report 5901841-1 (Version None)
Quarter: 2008Q3

REPORT INFORMATION
  Report Type: 
  Country: None (occurrence: None)
  Receive Date: 20080929
  Receipt Date: 20080918
  Transmission Date: 20090109
  Serious: Yes (Other)
  Sender: FDA-Public Use
  Company Number: US-JNJFOC-20080904965

PATIENT
  Sex: Male
  Weight: 142.88 kg

DRUGS (2)
  1. TOPAMAX [Suspect]
     Indication: CONVULSION
     Route: 048
  2. KEPPRA [Concomitant]
     Indication: CONVULSION

REACTIONS (3)
  - FEELING ABNORMAL [None]
  - PERICARDITIS [None]
  - TREMOR [None]
